FAERS Safety Report 9178179 (Version 3)
Quarter: 2013Q2

REPORT INFORMATION
  Report Type: Spontaneous
  Country: IT (occurrence: IT)
  Receive Date: 20130321
  Receipt Date: 20130417
  Transmission Date: 20140414
  Serious: Yes (Death, Hospitalization)
  Sender: FDA-Public Use
  Company Number: IT-ELI_LILLY_AND_COMPANY-IT201303005545

PATIENT
  Age: 58 Year
  Sex: Female

DRUGS (3)
  1. ALIMTA [Suspect]
     Indication: LUNG ADENOCARCINOMA
     Dosage: 600 MG, CYCLE
     Route: 042
     Dates: start: 20120816, end: 20120816
  2. FOLIC ACID [Concomitant]
  3. VITAMIN B12 [Concomitant]

REACTIONS (7)
  - Neutropenia [Fatal]
  - Thrombocytopenia [Fatal]
  - Anaemia [Fatal]
  - Renal failure acute [Fatal]
  - Haematuria [Fatal]
  - Acute respiratory failure [Fatal]
  - Coma [Fatal]
